FAERS Safety Report 7303826-X (Version None)
Quarter: 2011Q1

REPORT INFORMATION
  Report Type: 
  Country: None (occurrence: None)
  Receive Date: 20110221
  Receipt Date: 20110214
  Transmission Date: 20110831
  Serious: Yes (Hospitalization, Congenital Anomaly)
  Sender: FDA-Public Use
  Company Number: A0871561A

PATIENT
  Sex: Female
  Weight: 1.6 kg

DRUGS (4)
  1. ROCEPHIN [Concomitant]
     Route: 064
  2. MULTIVITAMIN [Concomitant]
     Route: 064
  3. PAXIL CR [Suspect]
     Dosage: 12.5MG UNKNOWN
     Route: 064
     Dates: start: 20040610, end: 20050111
  4. DEXAMETHASONE [Concomitant]
     Route: 064

REACTIONS (5)
  - PATENT DUCTUS ARTERIOSUS [None]
  - PULMONARY VALVE STENOSIS [None]
  - CARDIAC SEPTAL DEFECT [None]
  - ATRIAL SEPTAL DEFECT [None]
  - DRUG EXPOSURE DURING PREGNANCY [None]
